FAERS Safety Report 10487353 (Version 2)
Quarter: 2014Q4

REPORT INFORMATION
  Report Type: Spontaneous
  Country: US (occurrence: US)
  Receive Date: 20141001
  Receipt Date: 20141001
  Transmission Date: 20150528
  Serious: No
  Sender: FDA-Public Use
  Company Number: US-PFIZER INC-2014260104

PATIENT
  Age: 65 Year
  Sex: Female
  Weight: 86.17 kg

DRUGS (5)
  1. GABAPENTIN. [Suspect]
     Active Substance: GABAPENTIN
     Dosage: 100 MG, (WHICH WAS FINALLY UP TO 2)
     Dates: end: 2014
  2. GABAPENTIN. [Suspect]
     Active Substance: GABAPENTIN
     Indication: ARTHRALGIA
     Dosage: 600 MG, UNK
  3. GABAPENTIN. [Suspect]
     Active Substance: GABAPENTIN
     Indication: LIMB DISCOMFORT
     Dosage: 900 MG, UNK
  4. GABAPENTIN. [Suspect]
     Active Substance: GABAPENTIN
     Indication: PAIN IN EXTREMITY
     Dosage: A SMALL DOSAGE
     Dates: start: 201402
  5. CITALOPRAM [Concomitant]
     Active Substance: CITALOPRAM HYDROBROMIDE
     Dosage: UNK

REACTIONS (15)
  - Panic attack [Unknown]
  - Condition aggravated [Unknown]
  - Sensory disturbance [Unknown]
  - Nervousness [Unknown]
  - Hypoaesthesia [Unknown]
  - Product use issue [Unknown]
  - Fear [Unknown]
  - Mood altered [Unknown]
  - Bone disorder [Unknown]
  - Limb injury [Unknown]
  - Nerve injury [Unknown]
  - Depression [Unknown]
  - Muscular weakness [Unknown]
  - Tachyphrenia [Unknown]
  - Impaired work ability [Unknown]

NARRATIVE: CASE EVENT DATE: 2014
